FAERS Safety Report 6678800-7 (Version None)
Quarter: 2010Q2

REPORT INFORMATION
  Report Type: 
  Country: None (occurrence: None)
  Receive Date: 20100413
  Receipt Date: 20100401
  Transmission Date: 20101027
  Serious: No
  Sender: FDA-Public Use
  Company Number: US-ROXANE LABORATORIES, INC.-2010-RO-00399RO

PATIENT
  Sex: Male

DRUGS (7)
  1. MEGESTROL ACETATE [Suspect]
     Indication: DECREASED APPETITE
     Route: 048
     Dates: start: 20100327, end: 20100331
  2. SERTRALINE HCL [Suspect]
     Dosage: 50 MG
  3. NEXIUM [Concomitant]
     Dosage: 40 MG
  4. DIOVAN [Concomitant]
  5. PLAVIX [Concomitant]
     Dosage: 75 MG
  6. METOPROLOL TARTRATE [Concomitant]
  7. ASPIRIN [Concomitant]

REACTIONS (2)
  - DIARRHOEA [None]
  - FATIGUE [None]
